FAERS Safety Report 19510664 (Version 1)
Quarter: 2021Q3

REPORT INFORMATION
  Report Type: Spontaneous
  Country: DE (occurrence: DE)
  Receive Date: 20210709
  Receipt Date: 20210709
  Transmission Date: 20211014
  Serious: Yes (Hospitalization)
  Sender: FDA-Public Use
  Company Number: DE-TEVA-2021-DE-1929961

PATIENT
  Age: 40 Year
  Sex: Female
  Weight: 75 kg

DRUGS (4)
  1. PANTOPRAZOL [Suspect]
     Active Substance: PANTOPRAZOLE SODIUM
     Dosage: 40 MILLIGRAM DAILY;  1?0?0?0
     Route: 048
  2. PREDNISOLON [Suspect]
     Active Substance: PREDNISOLONE
     Dosage: 20 MILLIGRAM DAILY;   1?0?0?0,
     Route: 048
  3. COLCHICIN [Suspect]
     Active Substance: COLCHICINE
     Dosage: 1.5 DOSAGE FORMS DAILY;  1?1?1?0,
     Route: 048
  4. APREMILAST [Suspect]
     Active Substance: APREMILAST
     Dosage: 60 MILLIGRAM DAILY;  1?0?1?0,
     Route: 048

REACTIONS (7)
  - Flatulence [Unknown]
  - Abdominal pain lower [Unknown]
  - Oral candidiasis [Unknown]
  - Acute abdomen [Unknown]
  - Abdominal pain [Unknown]
  - Nausea [Unknown]
  - Abdominal pain upper [Unknown]
